FAERS Safety Report 17808309 (Version 2)
Quarter: 2020Q3

REPORT INFORMATION
  Report Type: Spontaneous
  Country: US (occurrence: US)
  Receive Date: 20200520
  Receipt Date: 20200914
  Transmission Date: 20201102
  Serious: Yes (Death, Other)
  Sender: FDA-Public Use
  Company Number: US-NAPPMUNDI-USA-2020-0153063

PATIENT
  Age: 46 Year
  Sex: Male

DRUGS (2)
  1. OXYCONTIN [Suspect]
     Active Substance: OXYCODONE HYDROCHLORIDE
     Indication: PRODUCT USED FOR UNKNOWN INDICATION
     Dosage: UNKNOWN
     Route: 048
  2. HYDROCODONE BITARTRATE AND ACETAMINOPHEN [Suspect]
     Active Substance: ACETAMINOPHEN\HYDROCODONE BITARTRATE
     Indication: PRODUCT USED FOR UNKNOWN INDICATION
     Dosage: UNKNOWN
     Route: 048

REACTIONS (9)
  - Drug tolerance [Unknown]
  - Drug dependence [Unknown]
  - Disability [Unknown]
  - Cognitive disorder [Unknown]
  - Gun shot wound [Fatal]
  - Cerebrovascular accident [Unknown]
  - Seizure [Unknown]
  - Drug withdrawal syndrome [Unknown]
  - Completed suicide [Fatal]

NARRATIVE: CASE EVENT DATE: 20180407
